FAERS Safety Report 4283990-X (Version None)
Quarter: 2004Q1

REPORT INFORMATION
  Report Type: 
  Country: None (occurrence: None)
  Receive Date: 20040130
  Receipt Date: 20040113
  Transmission Date: 20041129
  Serious: Yes (Hospitalization, Other)
  Sender: FDA-Public Use
  Company Number: USA040156521

PATIENT
  Sex: Female

DRUGS (6)
  1. HUMATROPE [Suspect]
     Indication: GROWTH HORMONE DEFICIENCY
     Dosage: 0.3 CM3
     Dates: start: 20030601, end: 20030901
  2. HUMATROPE [Suspect]
     Indication: GROWTH HORMONE DEFICIENCY
     Dosage: 0.1 CM3
     Dates: start: 20031101, end: 20031219
  3. LEVOXYL [Concomitant]
  4. THYROID TAB [Concomitant]
  5. ASPIRIN [Concomitant]
  6. CALCIUM [Concomitant]

REACTIONS (11)
  - ABDOMINAL DISTENSION [None]
  - ARTHRALGIA [None]
  - FLANK PAIN [None]
  - FLUID RETENTION [None]
  - JOINT SWELLING [None]
  - PRURITUS [None]
  - PULMONARY EMBOLISM [None]
  - SENSATION OF HEAVINESS [None]
  - TACHYCARDIA [None]
  - VASCULITIS [None]
  - WEIGHT INCREASED [None]
